FAERS Safety Report 15586580 (Version 14)
Quarter: 2019Q3

REPORT INFORMATION
  Report Type: Spontaneous
  Country: CA (occurrence: CA)
  Receive Date: 20181105
  Receipt Date: 20190716
  Transmission Date: 20191004
  Serious: Yes (Other)
  Sender: FDA-Public Use
  Company Number: CA-PFIZER INC-2018430826

PATIENT
  Age: 54 Year
  Sex: Female

DRUGS (18)
  1. METHOTREXATE. [Concomitant]
     Active Substance: METHOTREXATE
     Indication: ARTHRALGIA
     Dosage: 12.5 UNK, UNK
     Route: 048
  2. FOLIC ACID. [Concomitant]
     Active Substance: FOLIC ACID
     Dosage: UNK
     Route: 065
     Dates: start: 201901
  3. SALOFALK [MESALAZINE] [Concomitant]
     Active Substance: MESALAMINE
     Dosage: 1 G, 2X/DAY, PRN
     Route: 054
  4. XELJANZ [Suspect]
     Active Substance: TOFACITINIB CITRATE
     Indication: COLITIS ULCERATIVE
     Dosage: 10 MG, 2X/DAY
     Route: 048
     Dates: start: 20181015, end: 20190626
  5. XELJANZ [Suspect]
     Active Substance: TOFACITINIB CITRATE
     Dosage: 5MG/BID (2X/DAY)
     Route: 048
     Dates: start: 20190627
  6. METHOTREXATE. [Concomitant]
     Active Substance: METHOTREXATE
     Indication: INFLAMMATORY BOWEL DISEASE
     Dosage: 12.5 MG, WEEKLY
     Dates: start: 201901, end: 201904
  7. SHINGRIX [Concomitant]
     Active Substance: RECOMBINANT VARICELLA ZOSTER VIRUS (VZV) GLYCOPROTEIN E
     Dosage: UNK
  8. DEXILANT [Concomitant]
     Active Substance: DEXLANSOPRAZOLE
     Dosage: 30 MG, DAILY
     Route: 048
  9. FENTANYL. [Concomitant]
     Active Substance: FENTANYL
     Indication: ANAESTHESIA
     Dosage: 100 UG, ONCE
     Route: 042
     Dates: start: 20190403, end: 20190403
  10. METHOTREXATE. [Concomitant]
     Active Substance: METHOTREXATE
     Indication: MONOCLONAL ANTIBODY CHEMOIMMUNOCONJUGATE THERAPY
     Dosage: 17.5 MG, UNK
     Route: 048
     Dates: start: 201904, end: 201906
  11. SALOFALK [MESALAZINE] [Concomitant]
     Active Substance: MESALAMINE
     Dosage: UNK
  12. VERSED [Concomitant]
     Active Substance: MIDAZOLAM HYDROCHLORIDE
     Indication: ANAESTHESIA
     Dosage: 6 MG, UNK
     Route: 042
     Dates: start: 20190403, end: 20190403
  13. VERSED [Concomitant]
     Active Substance: MIDAZOLAM HYDROCHLORIDE
     Indication: COLONOSCOPY
  14. PICO-SALAX [Concomitant]
     Active Substance: ANHYDROUS CITRIC ACID\MAGNESIUM OXIDE\SODIUM PICOSULFATE
     Indication: COLONOSCOPY
  15. ESCITALOPRAM [Concomitant]
     Active Substance: ESCITALOPRAM OXALATE
     Dosage: 15 MG, DAILY
     Route: 048
  16. CELEBREX [Concomitant]
     Active Substance: CELECOXIB
     Indication: ARTHRALGIA
  17. METHOTREXATE. [Concomitant]
     Active Substance: METHOTREXATE
     Dosage: 12 MG, WEEKLY (EVERY MONDAY)
     Route: 058
     Dates: start: 2019
  18. FENTANYL. [Concomitant]
     Active Substance: FENTANYL
     Indication: COLONOSCOPY

REACTIONS (22)
  - Loss of consciousness [Recovered/Resolved with Sequelae]
  - Pain in extremity [Unknown]
  - Headache [Not Recovered/Not Resolved]
  - Peripheral swelling [Unknown]
  - Chills [Unknown]
  - Arthralgia [Not Recovered/Not Resolved]
  - Feeling hot [Unknown]
  - Mobility decreased [Not Recovered/Not Resolved]
  - Concussion [Not Recovered/Not Resolved]
  - Nausea [Not Recovered/Not Resolved]
  - Diverticulum intestinal [Unknown]
  - Influenza like illness [Unknown]
  - Frustration tolerance decreased [Recovering/Resolving]
  - Pain in jaw [Not Recovered/Not Resolved]
  - Haematochezia [Recovered/Resolved]
  - Loss of personal independence in daily activities [Not Recovered/Not Resolved]
  - Drug ineffective [Unknown]
  - Abdominal pain [Recovering/Resolving]
  - Dizziness [Not Recovered/Not Resolved]
  - Proctitis [Unknown]
  - Helicobacter infection [Unknown]
  - Costochondritis [Unknown]

NARRATIVE: CASE EVENT DATE: 2018
